FAERS Safety Report 14604130 (Version 5)
Quarter: 2018Q2

REPORT INFORMATION
  Report Type: Report from Study
  Country: DE (occurrence: DE)
  Receive Date: 20180306
  Receipt Date: 20180613
  Transmission Date: 20180711
  Serious: Yes (Hospitalization)
  Sender: FDA-Public Use
  Company Number: DE-PFIZER INC-2018092417

PATIENT
  Age: 70 Year
  Sex: Female
  Weight: 66 kg

DRUGS (6)
  1. CARBOPLATIN. [Suspect]
     Active Substance: CARBOPLATIN
     Indication: NON-SMALL CELL LUNG CANCER
     Dosage: 6MG*MIN/ML, UNK
     Route: 041
     Dates: start: 20170124, end: 20170124
  2. XARELTO [Concomitant]
     Active Substance: RIVAROXABAN
     Indication: ATRIAL FIBRILLATION
     Dosage: 20 MILLIGRAM, 1X/DAY
     Route: 048
     Dates: start: 2015
  3. RAMILICH [Concomitant]
     Active Substance: RAMIPRIL
     Indication: PULMONARY ARTERIAL HYPERTENSION
     Dosage: 5 MILLIGRAM, 1X/DAY
     Route: 048
     Dates: start: 2015
  4. ABRAXANE [Suspect]
     Active Substance: PACLITAXEL
     Indication: NON-SMALL CELL LUNG CANCER
     Dosage: 100 MILLIGRAM/SQ. METER, ONCE A DAY
     Route: 041
     Dates: start: 20170124, end: 20170207
  5. ASS + C-RATIOPHARM [Concomitant]
     Indication: ATRIAL FIBRILLATION
     Dosage: 100 MILLIGRAM, 1X/DAY
     Route: 048
     Dates: start: 2010
  6. METOPROLOL. [Concomitant]
     Active Substance: METOPROLOL
     Indication: PULMONARY ARTERIAL HYPERTENSION
     Dosage: 100 MILLIGRAM, 1X/DAY
     Route: 048
     Dates: start: 2015

REACTIONS (1)
  - Performance status decreased [Recovered/Resolved]

NARRATIVE: CASE EVENT DATE: 20170131
